FAERS Safety Report 23486635 (Version 1)
Quarter: 2024Q1

REPORT INFORMATION
  Report Type: Spontaneous
  Country: RS (occurrence: RS)
  Receive Date: 20240206
  Receipt Date: 20240206
  Transmission Date: 20240410
  Serious: Yes (Other)
  Sender: FDA-Public Use
  Company Number: RS-MYLANLABS-2024M1011497

PATIENT
  Age: 30 Year
  Sex: Female

DRUGS (7)
  1. VENLAFAXINE [Suspect]
     Active Substance: VENLAFAXINE HYDROCHLORIDE
     Indication: Major depression
     Dosage: 225 MILLIGRAM, QD
     Route: 065
     Dates: start: 2021
  2. LAMOTRIGINE [Concomitant]
     Active Substance: LAMOTRIGINE
     Indication: Major depression
     Dosage: 200 MILLIGRAM, QD
     Route: 065
     Dates: start: 2021
  3. LORAZEPAM [Concomitant]
     Active Substance: LORAZEPAM
     Indication: Major depression
     Dosage: 3.75 MILLIGRAM, QD
     Route: 065
     Dates: start: 2021
  4. LORAZEPAM [Concomitant]
     Active Substance: LORAZEPAM
     Dosage: 75 MILLIGRAM (DRUG OVERDOSE)
     Route: 065
     Dates: start: 202209
  5. LORAZEPAM [Concomitant]
     Active Substance: LORAZEPAM
     Dosage: UNK (TAPERED DOSE)
     Route: 065
  6. QUETIAPINE [Concomitant]
     Active Substance: QUETIAPINE
     Indication: Major depression
     Dosage: 75 MILLIGRAM, QD
     Route: 065
     Dates: start: 2021
  7. QUETIAPINE [Concomitant]
     Active Substance: QUETIAPINE
     Dosage: 1500 MILLIGRAM (DRUG OVERDOSE)
     Route: 065
     Dates: start: 202209

REACTIONS (3)
  - Suicidal ideation [Recovered/Resolved]
  - Drug withdrawal syndrome [Recovered/Resolved]
  - Product availability issue [Recovered/Resolved]

NARRATIVE: CASE EVENT DATE: 20220401
